FAERS Safety Report 10417097 (Version 3)
Quarter: 2015Q2

REPORT INFORMATION
  Report Type: Spontaneous
  Country: JP (occurrence: JP)
  Receive Date: 20140828
  Receipt Date: 20150415
  Transmission Date: 20150821
  Serious: Yes (Death, Hospitalization, Other)
  Sender: FDA-Public Use
  Company Number: JP-PFIZER INC-2014238430

PATIENT
  Age: 86 Year
  Sex: Male
  Weight: 60 kg

DRUGS (2)
  1. ELIQUIS [Suspect]
     Active Substance: APIXABAN
     Indication: THROMBOSIS PROPHYLAXIS
     Dosage: 2.5 MG, 2X/DAY
     Route: 048
     Dates: start: 20140221
  2. NORVASC [Concomitant]
     Active Substance: AMLODIPINE BESYLATE
     Indication: BLOOD PRESSURE
     Dosage: 2.5 MG, 1X/DAY
     Route: 048
     Dates: start: 20140408

REACTIONS (5)
  - Thalamus haemorrhage [Fatal]
  - Rhabdomyolysis [Unknown]
  - Dehydration [None]
  - Renal impairment [None]
  - Decubitus ulcer [Unknown]

NARRATIVE: CASE EVENT DATE: 20140813
